FAERS Safety Report 5673322-4 (Version None)
Quarter: 2008Q1

REPORT INFORMATION
  Report Type: 
  Country: None (occurrence: None)
  Receive Date: 20080319
  Receipt Date: 20080312
  Transmission Date: 20080703
  Serious: Yes (Other)
  Sender: FDA-Public Use
  Company Number: BR-ASTRAZENECA-2008UW05257

PATIENT
  Age: 81 Year
  Sex: Female
  Weight: 54 kg

DRUGS (6)
  1. ARIMIDEX [Suspect]
     Indication: LUNG NEOPLASM MALIGNANT
     Route: 048
     Dates: start: 20060301, end: 20080305
  2. SYNTHROID [Concomitant]
     Route: 048
  3. IRBESARTAN [Concomitant]
     Indication: HYPERTENSION
     Route: 048
  4. MONOCORDIL [Concomitant]
     Indication: PROMOTION OF PERIPHERAL CIRCULATION
     Route: 048
  5. PREVENCOR [Concomitant]
     Indication: PROMOTION OF PERIPHERAL CIRCULATION
     Route: 048
  6. GINKGO BILOBA [Concomitant]
     Indication: MEMORY IMPAIRMENT
     Route: 048

REACTIONS (5)
  - BONE PAIN [None]
  - COLLAPSE OF LUNG [None]
  - METASTASES TO SPINE [None]
  - PLEURAL EFFUSION [None]
  - PNEUMONIA [None]
